FAERS Safety Report 9396365 (Version 1)
Quarter: 2013Q3

REPORT INFORMATION
  Report Type: Spontaneous
  Country: US (occurrence: US)
  Receive Date: 20130711
  Receipt Date: 20130711
  Transmission Date: 20140515
  Serious: No
  Sender: FDA-Public Use
  Company Number: US-BIOGENIDEC-2013BI061857

PATIENT
  Sex: Female

DRUGS (1)
  1. AVONEX [Suspect]
     Indication: MULTIPLE SCLEROSIS
     Route: 030
     Dates: start: 20130618

REACTIONS (3)
  - Frustration [Recovered/Resolved with Sequelae]
  - Feeling of despair [Recovered/Resolved with Sequelae]
  - Headache [Recovered/Resolved with Sequelae]
